FAERS Safety Report 14418957 (Version 1)
Quarter: 2018Q1

REPORT INFORMATION
  Report Type: Spontaneous
  Country: CZ (occurrence: CZ)
  Receive Date: 20180122
  Receipt Date: 20180122
  Transmission Date: 20180509
  Serious: Yes (Hospitalization, Other)
  Sender: FDA-Public Use
  Company Number: CZ-MYLANLABS-2018M1004345

PATIENT
  Age: 51 Year
  Sex: Female

DRUGS (12)
  1. TRAZODONE [Concomitant]
     Active Substance: TRAZODONE HYDROCHLORIDE
     Indication: PRODUCT USED FOR UNKNOWN INDICATION
     Dosage: 300 MG, QD
     Route: 065
  2. MIDAZOLAM [Concomitant]
     Active Substance: MIDAZOLAM HYDROCHLORIDE
     Indication: SEDATION
     Route: 065
  3. BROMAZEPAM [Concomitant]
     Active Substance: BROMAZEPAM
     Indication: PRODUCT USED FOR UNKNOWN INDICATION
     Dosage: 2 MG, QD
     Route: 065
  4. MIDAZOLAM [Concomitant]
     Active Substance: MIDAZOLAM HYDROCHLORIDE
     Indication: MYOCLONUS
     Dosage: 15 MG, 1HR
     Route: 065
  5. CODEINE [Concomitant]
     Active Substance: CODEINE
     Indication: PAIN
     Route: 065
  6. PARACETAMOL/TRAMADOL [Interacting]
     Active Substance: ACETAMINOPHEN\TRAMADOL
     Indication: PRODUCT USED FOR UNKNOWN INDICATION
     Dosage: UNK
     Route: 065
  7. IVABRADINE [Concomitant]
     Active Substance: IVABRADINE
     Indication: SINUS TACHYCARDIA
     Dosage: 10 MG, QD
     Route: 065
  8. SUFENTANIL [Concomitant]
     Active Substance: SUFENTANIL
     Indication: SEDATION
     Route: 065
  9. TRAMADOL. [Interacting]
     Active Substance: TRAMADOL
     Indication: PRODUCT USED FOR UNKNOWN INDICATION
     Dosage: UNK
     Route: 065
  10. BUDESONIDE. [Concomitant]
     Active Substance: BUDESONIDE
     Indication: ASTHMA
     Dosage: 160/4.5 MG, UNK
     Route: 055
  11. PAROXETINE. [Suspect]
     Active Substance: PAROXETINE
     Indication: PRODUCT USED FOR UNKNOWN INDICATION
     Dosage: 60 MG, QD
     Route: 065
  12. ACETAMINOPHEN. [Concomitant]
     Active Substance: ACETAMINOPHEN
     Indication: PRODUCT USED FOR UNKNOWN INDICATION
     Dosage: 4 G, QD
     Route: 065

REACTIONS (22)
  - Serotonin syndrome [Unknown]
  - Hypertension [Unknown]
  - Dyspnoea [Unknown]
  - Myoclonus [Unknown]
  - Sinus tachycardia [Unknown]
  - Tachycardia [Unknown]
  - Muscle spasms [Unknown]
  - Restlessness [Unknown]
  - Pneumonia fungal [Unknown]
  - Circulatory collapse [Unknown]
  - Pyrexia [Unknown]
  - Drug interaction [Unknown]
  - Agitation [Unknown]
  - Myoglobin blood increased [Unknown]
  - Arthralgia [Unknown]
  - Mydriasis [Unknown]
  - Hyperhidrosis [Unknown]
  - Tremor [Unknown]
  - Oliguria [Unknown]
  - Metabolic acidosis [Unknown]
  - Delirium [Unknown]
  - Leukocytosis [Unknown]
